FAERS Safety Report 8185250-3 (Version None)
Quarter: 2012Q1

REPORT INFORMATION
  Report Type: 
  Country: None (occurrence: None)
  Receive Date: 20120305
  Receipt Date: 20120223
  Transmission Date: 20120608
  Serious: Yes (Other)
  Sender: FDA-Public Use
  Company Number: PHHY2012AU016699

PATIENT
  Sex: Male

DRUGS (4)
  1. GASTRO-STOP [Concomitant]
  2. SANDOSTATIN LAR [Suspect]
     Indication: CARCINOID SYNDROME
     Dosage: 30 MG, UNK
     Route: 030
     Dates: start: 20060101
  3. SANDOSTATIN LAR [Suspect]
     Dosage: UNK UKN, UNK
     Dates: start: 20120127
  4. ALLOPURINOL [Concomitant]
     Dosage: 1 DF, UNK

REACTIONS (1)
  - NEPHROLITHIASIS [None]
